FAERS Safety Report 11285062 (Version 1)
Quarter: 2015Q3

REPORT INFORMATION
  Report Type: Report from Study
  Country: ES (occurrence: ES)
  Receive Date: 20150720
  Receipt Date: 20150720
  Transmission Date: 20151125
  Serious: Yes (Other)
  Sender: FDA-Public Use
  Company Number: ES-BAYER-2015-375803

PATIENT
  Age: 89 Year
  Sex: Female

DRUGS (2)
  1. ADIRO 300MG GATRO-RESISTANT TABLETS, 30 TABLETS [Suspect]
     Active Substance: ASPIRIN
     Indication: EMBOLISM VENOUS
  2. ADIRO 300MG GATRO-RESISTANT TABLETS, 30 TABLETS [Suspect]
     Active Substance: ASPIRIN
     Indication: ATRIAL FIBRILLATION
     Dosage: 300 MG DAILY DOSE (SELF-MEDICATION)
     Route: 048
     Dates: start: 20150107, end: 20150115

REACTIONS (6)
  - Self-medication [None]
  - Wrong drug administered [None]
  - Haemodynamic rebound [Recovered/Resolved]
  - Treatment noncompliance [None]
  - Haemoglobin decreased [None]
  - Lower gastrointestinal haemorrhage [Recovered/Resolved]

NARRATIVE: CASE EVENT DATE: 20150114
